FAERS Safety Report 4919741-2 (Version None)
Quarter: 2006Q1

REPORT INFORMATION
  Report Type: 
  Country: None (occurrence: None)
  Receive Date: 20060221
  Receipt Date: 20060209
  Transmission Date: 20060701
  Serious: Yes (Death)
  Sender: FDA-Public Use
  Company Number: 2006009626

PATIENT
  Age: 40 Year
  Sex: Male

DRUGS (1)
  1. ZYVOX [Suspect]
     Indication: PNEUMONIA
     Dosage: TWO BAGS DAILY (600 MG 2 IN 2 D) INTRAVENOUS
     Route: 042
     Dates: start: 20051230, end: 20060106

REACTIONS (3)
  - CARDIAC FAILURE [None]
  - INFECTION [None]
  - RESPIRATORY FAILURE [None]
